FAERS Safety Report 4895093-1 (Version None)
Quarter: 2006Q1

REPORT INFORMATION
  Report Type: 
  Country: None (occurrence: None)
  Receive Date: 20060130
  Receipt Date: 20051221
  Transmission Date: 20060701
  Serious: Yes (Other)
  Sender: FDA-Public Use
  Company Number: PHEH2005US13737

PATIENT
  Age: 18 Year
  Sex: Female
  Weight: 47 kg

DRUGS (2)
  1. VOLTAREN-XR [Suspect]
     Indication: EHLERS-DANLOS SYNDROME
     Dosage: 100 MG, QD
     Route: 048
  2. TRAMADOL HCL [Concomitant]
     Indication: ARTHRALGIA
     Dosage: 225 MG, QD
     Route: 048

REACTIONS (1)
  - PROTEIN S DECREASED [None]
